FAERS Safety Report 24237345 (Version 3)
Quarter: 2024Q4

REPORT INFORMATION
  Report Type: Spontaneous
  Country: US (occurrence: US)
  Receive Date: 20240822
  Receipt Date: 20241112
  Transmission Date: 20250114
  Serious: No
  Sender: LUNDBECK
  Company Number: US-LUNDBECK-DKLU4002200

PATIENT

DRUGS (1)
  1. VYEPTI [Suspect]
     Active Substance: EPTINEZUMAB-JJMR
     Indication: Migraine
     Route: 041
     Dates: start: 20240718

REACTIONS (9)
  - Mood swings [Unknown]
  - Somnolence [Unknown]
  - Blood pressure decreased [Unknown]
  - Confusional state [Unknown]
  - Dizziness [Unknown]
  - Bradyphrenia [Unknown]
  - Migraine [Not Recovered/Not Resolved]
  - Throat irritation [Not Recovered/Not Resolved]
  - Drug ineffective [Unknown]

NARRATIVE: CASE EVENT DATE: 20240818
